FAERS Safety Report 6925617-1 (Version None)
Quarter: 2010Q3

REPORT INFORMATION
  Report Type: 
  Country: None (occurrence: None)
  Receive Date: 20100813
  Receipt Date: 20100813
  Transmission Date: 20110219
  Serious: No
  Sender: FDA-Public Use
  Company Number: None

PATIENT
  Sex: Female
  Weight: 53 kg

DRUGS (6)
  1. CARBOPLATIN [Suspect]
     Dosage: 483.6 MG
     Dates: end: 20100727
  2. CARBOPLATIN [Suspect]
     Dosage: 483.6 MG
     Dates: start: 20100614
  3. CARBOPLATIN [Suspect]
     Dosage: 483.6 MG
     Dates: start: 20100706
  4. TAXOL [Suspect]
     Dosage: 267.78 MG
     Dates: end: 20100727
  5. TAXOL [Suspect]
     Dosage: 267.78 MG
     Dates: start: 20100614
  6. TAXOL [Suspect]
     Dosage: 267.78 MG
     Dates: start: 20100706

REACTIONS (1)
  - NEUTROPHIL COUNT DECREASED [None]
